FAERS Safety Report 16770380 (Version 1)
Quarter: 2019Q3

REPORT INFORMATION
  Report Type: Other
  Country: GB (occurrence: GB)
  Receive Date: 20190904
  Receipt Date: 20190904
  Transmission Date: 20191005
  Serious: Yes (Hospitalization)
  Sender: FDA-Public Use
  Company Number: GB-EMCURE PHARMACEUTICALS LTD-2019-EPL-0620

PATIENT
  Age: 81 Year
  Sex: Female
  Weight: 54 kg

DRUGS (33)
  1. AMITRIPTYLINE HYDROCHLORIDE. [Concomitant]
     Active Substance: AMITRIPTYLINE HYDROCHLORIDE
     Dosage: ONE TWICE A DAY FOUR EVERY NIGHT
     Route: 065
     Dates: start: 19890807, end: 20190513
  2. DIFLUNISAL. [Concomitant]
     Active Substance: DIFLUNISAL
     Dosage: 4 DOSAGE FORM, QD
     Route: 065
     Dates: start: 19880518, end: 20190513
  3. SITAGLIPTIN [Concomitant]
     Active Substance: SITAGLIPTIN
     Dosage: 1 DOSAGE FORM, QD
     Route: 065
     Dates: start: 20190509
  4. PREMARIN [Concomitant]
     Active Substance: ESTROGENS, CONJUGATED
     Dosage: 1 DOSAGE FORM, QD
     Route: 065
     Dates: start: 19880804, end: 20190513
  5. DEXTROPROPOXYPHENE HCL W/PARACETAMOL [Concomitant]
     Active Substance: ACETAMINOPHEN\PROPOXYPHENE HYDROCHLORIDE
     Dosage: 8 DOSAGE FORM, QD
     Route: 065
     Dates: start: 19880518, end: 20190513
  6. MUCAINE                            /00115701/ [Concomitant]
     Dosage: 15 MILLILITER, QD, BEFORE FOOD
     Route: 065
     Dates: start: 19891023, end: 20190513
  7. DEXTROPROPOXYPHENE [Concomitant]
     Active Substance: PROPOXYPHENE HYDROCHLORIDE
     Indication: PAIN
     Dosage: 1OCC
     Route: 065
     Dates: start: 19891212, end: 20190513
  8. ONDANSETRON [Concomitant]
     Active Substance: ONDANSETRON
     Dosage: 2 DOSAGE FORM, QD
     Route: 065
     Dates: start: 20190724, end: 20190729
  9. DOMPERIDONE [Concomitant]
     Active Substance: DOMPERIDONE
     Indication: NAUSEA
     Dosage: 3 DOSAGE FORM
     Route: 065
     Dates: start: 20190701, end: 20190706
  10. GAVISCON ADVANCE [Concomitant]
     Active Substance: POTASSIUM BICARBONATE\SODIUM ALGINATE
     Dosage: UNK UNK, PRN, USE AS DIRECTED
     Route: 065
     Dates: start: 20190509
  11. FOSFOMYCIN [Concomitant]
     Active Substance: FOSFOMYCIN
     Indication: URINARY TRACT INFECTION
     Dosage: TAKE ONE
     Route: 065
     Dates: start: 20190703, end: 20190704
  12. LACTULOSE. [Concomitant]
     Active Substance: LACTULOSE
     Dosage: 30 MILLILITER, QD
     Route: 065
     Dates: start: 19880518, end: 20190513
  13. HYDROCORTISONE. [Concomitant]
     Active Substance: HYDROCORTISONE
     Dosage: 2 DOSAGE FORM, QD, APPLY
     Route: 065
     Dates: start: 20190722, end: 20190805
  14. NIZATIDINE. [Concomitant]
     Active Substance: NIZATIDINE
     Dosage: 1 DOSAGE FORM, QD, EVERY NIGHT
     Dates: start: 19890614, end: 20190513
  15. OPTIVE [Concomitant]
     Active Substance: CARBOXYMETHYLCELLULOSE SODIUM\GLYCERIN
     Dosage: USE AS DIRECTED
     Route: 065
     Dates: start: 20190509
  16. SUCRALFATE. [Concomitant]
     Active Substance: SUCRALFATE
     Dosage: 4 DOSAGE FORM
     Route: 065
     Dates: start: 19881230, end: 20190513
  17. BENORILATE [Concomitant]
     Active Substance: BENORILATE
     Dosage: 10 TWICE A DAY
     Route: 065
     Dates: start: 19900110, end: 20190513
  18. SERTRALINE [Concomitant]
     Active Substance: SERTRALINE HYDROCHLORIDE
     Dosage: UNK UNK, PRN, USE AS DIRECTED
     Route: 065
     Dates: start: 20190722
  19. TEMAZEPAM. [Concomitant]
     Active Substance: TEMAZEPAM
     Dosage: 1 DOSAGE FORM, PRN, AT NIGHT
     Route: 065
     Dates: start: 20190509
  20. FLUTICASONE FUROATE [Concomitant]
     Active Substance: FLUTICASONE FUROATE
     Dosage: 1 DOSAGE FORM, QD
     Dates: start: 20190509
  21. FLUOXETINE [Suspect]
     Active Substance: FLUOXETINE HYDROCHLORIDE
     Indication: PRODUCT USED FOR UNKNOWN INDICATION
     Dosage: 1 DOSAGE FORM, QD, (MAY WISH TO START WITH HALF A T...)
     Route: 065
     Dates: start: 20190723
  22. MACROGOL [Concomitant]
     Active Substance: POLYETHYLENE GLYCOLS
     Dosage: USE AS DIRECTED
     Route: 065
     Dates: start: 20190509
  23. PARACETAMOL [Concomitant]
     Active Substance: ACETAMINOPHEN
     Dosage: UNK UNK, PRN, TAKE ONE OR TWO 4 TIMES/DAY
     Route: 065
     Dates: start: 20190509
  24. PREDNISOLONE. [Concomitant]
     Active Substance: PREDNISOLONE
     Dosage: 2 DOSAGE FORM, QD, EVERY NIGHT
     Route: 065
     Dates: start: 19880518
  25. CEFALEXIN [Concomitant]
     Active Substance: CEPHALEXIN
     Dosage: 4 DOSAGE FORM, QD
     Route: 065
     Dates: start: 20190724, end: 20190731
  26. AZATHIOPRINE. [Concomitant]
     Active Substance: AZATHIOPRINE
     Dosage: 2 DOSAGE FORM, QD
     Route: 065
     Dates: start: 19880518, end: 20190513
  27. TRAMADOL. [Concomitant]
     Active Substance: TRAMADOL
     Dosage: TO  TAKE ONE CAPSULE  FOUR TIMES  DAILY WHEN RE...
     Route: 065
     Dates: start: 20190509
  28. EDOXABAN [Concomitant]
     Active Substance: EDOXABAN TOSYLATE
     Dosage: 1 DOSAGE FORM, QD
     Route: 065
     Dates: start: 20190509
  29. COLECALCIFEROL [Concomitant]
     Active Substance: CHOLECALCIFEROL
     Dosage: 1 DOSAGE FORM, QD, IN THE MORNING
     Route: 065
     Dates: start: 20190509
  30. OMEPRAZOLE. [Concomitant]
     Active Substance: OMEPRAZOLE
     Dosage: 4 DOSAGE FORM, QD, FOR 1 WEEK
     Route: 065
     Dates: start: 20190509
  31. GASTROCOTE                         /00480201/ [Concomitant]
     Dosage: 4 DOSAGE FORM, QD, AFTER FOOD
     Route: 065
     Dates: start: 19880518, end: 20190513
  32. CANDESARTAN. [Concomitant]
     Active Substance: CANDESARTAN
     Dosage: 1 DOSAGE FORM, QD
     Route: 065
     Dates: start: 20190509
  33. FUROSEMIDE. [Concomitant]
     Active Substance: FUROSEMIDE
     Dosage: 1 DOSAGE FORM, QD, EACH MORNING
     Route: 065
     Dates: start: 20190503

REACTIONS (2)
  - Circulatory collapse [Unknown]
  - Hyponatraemia [Recovering/Resolving]

NARRATIVE: CASE EVENT DATE: 20190808
